FAERS Safety Report 7964351-6 (Version None)
Quarter: 2011Q4

REPORT INFORMATION
  Report Type: 
  Country: None (occurrence: None)
  Receive Date: 20111208
  Receipt Date: 20111128
  Transmission Date: 20120403
  Serious: Yes (Hospitalization, Disabling)
  Sender: FDA-Public Use
  Company Number: US-BAYER-201039361NA

PATIENT
  Age: 30 Year
  Sex: Female
  Weight: 65.76 kg

DRUGS (9)
  1. ADVAIR DISKUS 100/50 [Concomitant]
     Dosage: 1 PUFF(S), BID
     Route: 055
  2. YASMIN [Suspect]
     Indication: PREMENSTRUAL SYNDROME
  3. DEPAKOTE [Concomitant]
     Dosage: 500 MG, BID
     Route: 048
  4. YASMIN [Suspect]
     Indication: CONTRACEPTION
     Route: 048
     Dates: start: 20061101, end: 20070102
  5. YAZ [Suspect]
     Indication: PREMENSTRUAL SYNDROME
  6. POTASSIUM CHLORIDE [Concomitant]
     Indication: SUPPLEMENTATION THERAPY
     Dosage: UNK UNK, PRN
     Route: 048
  7. ASCORBIC ACID [Concomitant]
     Dosage: UNK UNK, PRN
     Route: 048
  8. YAZ [Suspect]
     Indication: CONTRACEPTION
     Route: 048
     Dates: start: 20070102, end: 20070321
  9. XOPENEX [Concomitant]
     Route: 055

REACTIONS (3)
  - DEEP VEIN THROMBOSIS [None]
  - PULMONARY EMBOLISM [None]
  - THROMBOSIS [None]
